FAERS Safety Report 17401584 (Version 2)
Quarter: 2020Q1

REPORT INFORMATION
  Report Type: Spontaneous
  Country: TR (occurrence: TR)
  Receive Date: 20200203
  Receipt Date: 20200305
  Transmission Date: 20200409
  Serious: Yes (Life-Threatening, Hospitalization)
  Sender: FDA-Public Use
  Company Number: TR-BEH-2020112292

PATIENT
  Age: 65 Year
  Sex: Male

DRUGS (2)
  1. PRIVIGEN [Suspect]
     Active Substance: HUMAN IMMUNOGLOBULIN G
     Indication: NEURALGIA
     Dosage: 2 UNITS (DAILY DOSE), 3X1
     Route: 065
     Dates: start: 20200111
  2. AVIL [PHENIRAMINE AMINOSALICYLATE] [Concomitant]
     Indication: PREMEDICATION
     Dosage: 13 UNITS
     Route: 065

REACTIONS (8)
  - Speech disorder [Unknown]
  - Tremor [Unknown]
  - Loss of consciousness [Unknown]
  - Anaphylactic shock [Unknown]
  - Hypotension [Unknown]
  - Thrombosis [Unknown]
  - No adverse event [Unknown]
  - Product use in unapproved indication [Unknown]
